FAERS Safety Report 6686039 (Version 21)
Quarter: 2015Q3

REPORT INFORMATION
  Report Type: Spontaneous
  Country: US (occurrence: US)
  Receive Date: 20080627
  Receipt Date: 20150929
  Transmission Date: 20151125
  Serious: Yes (Death, Life-Threatening, Hospitalization, Congenital Anomaly, Other)
  Sender: FDA-Public Use
  Company Number: US-PFIZER INC-2008051543

PATIENT
  Sex: Female
  Weight: 3 kg

DRUGS (9)
  1. ZOLOFT [Suspect]
     Active Substance: SERTRALINE HYDROCHLORIDE
     Indication: ANXIETY
     Dosage: 50 MG, UNK
     Route: 064
     Dates: start: 200702, end: 20070327
  2. PRENATAL VITAMINS [Concomitant]
     Active Substance: VITAMINS
     Dosage: UNK
     Route: 064
  3. ASCORBIC ACID. [Concomitant]
     Active Substance: ASCORBIC ACID
     Dosage: 500 MG, UNK
     Route: 064
  4. ZOLOFT [Suspect]
     Active Substance: SERTRALINE HYDROCHLORIDE
     Indication: OBSESSIVE-COMPULSIVE DISORDER
     Dosage: UNK
     Route: 064
     Dates: start: 20070319
  5. VITAMIN C [Concomitant]
     Active Substance: ASCORBIC ACID
     Dosage: UNK
     Route: 064
     Dates: start: 20071210
  6. ZOLOFT [Suspect]
     Active Substance: SERTRALINE HYDROCHLORIDE
     Dosage: 100 MG, UNK
     Route: 064
     Dates: start: 20070327
  7. FERGON [Concomitant]
     Active Substance: FERROUS GLUCONATE
     Dosage: UNK
     Route: 064
     Dates: start: 20071210
  8. ZOLOFT [Suspect]
     Active Substance: SERTRALINE HYDROCHLORIDE
     Indication: DEPRESSION
     Dosage: 25 MG, DAILY (50 MG, HALF TABLET DAILY FOR 4 DAYS)
     Route: 064
     Dates: start: 20070215, end: 200702
  9. FOLIC ACID. [Concomitant]
     Active Substance: FOLIC ACID
     Dosage: 1 MG, UNK
     Route: 064

REACTIONS (27)
  - Right ventricular dysfunction [Fatal]
  - Cardio-respiratory arrest [Unknown]
  - Nuclear magnetic resonance imaging brain abnormal [Unknown]
  - Foetal exposure during pregnancy [Fatal]
  - Asthenia [Unknown]
  - Right atrial dilatation [Unknown]
  - Pneumonia viral [Unknown]
  - Pleural effusion [Unknown]
  - Cardiac failure [Fatal]
  - Sepsis neonatal [Unknown]
  - Acidosis [Unknown]
  - Tricuspid valve incompetence [Unknown]
  - Congenital mitral valve stenosis [Unknown]
  - Congenital aortic stenosis [Unknown]
  - Pulmonary valve disease [Unknown]
  - Developmental delay [Unknown]
  - Left ventricular hypertrophy [Unknown]
  - Peripheral artery thrombosis [Unknown]
  - Cholelithiasis [Unknown]
  - Atrioventricular septal defect [Unknown]
  - Lower respiratory tract infection [Unknown]
  - Aortic valve incompetence [Unknown]
  - Hypoplastic left heart syndrome [Fatal]
  - Jaundice neonatal [Recovered/Resolved]
  - Knee deformity [Unknown]
  - Aortic disorder [Unknown]
  - Cardiomegaly [Unknown]

NARRATIVE: CASE EVENT DATE: 200712
